FAERS Safety Report 7589866-4 (Version None)
Quarter: 2011Q3

REPORT INFORMATION
  Report Type: 
  Country: None (occurrence: None)
  Receive Date: 20110705
  Receipt Date: 20110624
  Transmission Date: 20111222
  Serious: Yes (Hospitalization)
  Sender: FDA-Public Use
  Company Number: JP-MERCK-1105USA00073

PATIENT
  Age: 88 Year
  Sex: Male

DRUGS (12)
  1. BUFFERIN [Concomitant]
     Route: 048
  2. NEORAL [Concomitant]
     Indication: NEPHROTIC SYNDROME
     Route: 048
  3. TANATRIL [Concomitant]
     Indication: HYPERTENSION
     Route: 048
  4. FOSAMAX [Suspect]
     Indication: OSTEOPOROSIS
     Route: 048
  5. PRAVASTATIN SODIUM [Concomitant]
     Indication: HYPERLIPIDAEMIA
     Route: 048
  6. DAI-KENCHU-TO [Concomitant]
     Route: 048
  7. NORVASC [Concomitant]
     Indication: HYPERTENSION
     Route: 048
  8. AMARYL [Concomitant]
     Indication: DIABETES MELLITUS
     Route: 048
  9. GLUCOBAY [Concomitant]
     Indication: DIABETES MELLITUS
     Route: 048
  10. AZELASTINE HCL [Concomitant]
     Indication: RHINITIS
     Route: 048
  11. ADALAT CC [Concomitant]
     Indication: HYPERTENSION
     Route: 048
  12. LASIX [Concomitant]
     Indication: HYPERTENSION
     Route: 048

REACTIONS (1)
  - LARYNGEAL ULCERATION [None]
